FAERS Safety Report 6921911-9 (Version None)
Quarter: 2010Q3

REPORT INFORMATION
  Report Type: 
  Country: None (occurrence: None)
  Receive Date: 20100812
  Receipt Date: 20100803
  Transmission Date: 20110219
  Serious: Yes (Other)
  Sender: FDA-Public Use
  Company Number: FR-ROCHE-659910

PATIENT
  Sex: Female
  Weight: 57 kg

DRUGS (9)
  1. METHOXY POLYETHYLENE GLYCOL-EPOETIN BETA [Suspect]
     Route: 058
     Dates: start: 20090622
  2. METHOXY POLYETHYLENE GLYCOL-EPOETIN BETA [Interacting]
     Route: 058
     Dates: start: 20091028
  3. ATORVASTATIN CALCIUM [Interacting]
     Indication: PRODUCT USED FOR UNKNOWN INDICATION
     Dosage: DOSAGE: ONE TABLET DAILY.
     Route: 065
     Dates: end: 20090923
  4. NEORAL [Concomitant]
  5. CELLCEPT [Concomitant]
  6. CORTANCYL [Concomitant]
  7. OMEPRAZOLE [Concomitant]
  8. TARDYFERON [Concomitant]
  9. INSULIN NOVOMIX [Concomitant]
     Dosage: DRUG: INSULINE NOVOMIX 30

REACTIONS (3)
  - DRUG INTERACTION [None]
  - PLATELET COUNT DECREASED [None]
  - RHABDOMYOLYSIS [None]
